FAERS Safety Report 14560390 (Version 6)
Quarter: 2020Q3

REPORT INFORMATION
  Report Type: Report from Study
  Country: US (occurrence: US)
  Receive Date: 20180222
  Receipt Date: 20200707
  Transmission Date: 20201102
  Serious: Yes (Other)
  Sender: FDA-Public Use
  Company Number: PHHY2018US029660

PATIENT
  Age: 52 Year
  Sex: Female

DRUGS (1)
  1. GILENYA [Suspect]
     Active Substance: FINGOLIMOD HYDROCHLORIDE
     Indication: MULTIPLE SCLEROSIS
     Dosage: UNK, QD
     Route: 048

REACTIONS (9)
  - Dizziness [Unknown]
  - White blood cell count decreased [Unknown]
  - Fatigue [Unknown]
  - Blood pressure diastolic increased [Unknown]
  - Hypoaesthesia [Unknown]
  - Lymphocyte count decreased [Unknown]
  - Blood pressure increased [Recovered/Resolved]
  - Alanine aminotransferase increased [Unknown]
  - Melanocytic naevus [Not Recovered/Not Resolved]

NARRATIVE: CASE EVENT DATE: 20180208
